FAERS Safety Report 7542994-1 (Version None)
Quarter: 2011Q2

REPORT INFORMATION
  Report Type: 
  Country: None (occurrence: None)
  Receive Date: 20110613
  Receipt Date: 20110531
  Transmission Date: 20111010
  Serious: Yes (Hospitalization, Other)
  Sender: FDA-Public Use
  Company Number: PHEH2007US04455

PATIENT
  Sex: Female
  Weight: 86.621 kg

DRUGS (24)
  1. EFFEXOR XR [Concomitant]
     Dosage: 75 MG, UNK
  2. ACETAMINOPHEN PM [Concomitant]
  3. SYNTHROID [Concomitant]
     Dosage: 100 MCG
  4. PERCOCET [Concomitant]
     Dosage: 5/325 MG, PRN
  5. DEXAMETHASONE [Concomitant]
     Dosage: 4 MG, BID
     Dates: start: 20090114
  6. AREDIA [Suspect]
     Indication: METASTASES TO BONE
     Dosage: MONTHLY
  7. CELEBREX [Concomitant]
     Dosage: 200 MG, UNK
  8. NEXIUM [Concomitant]
     Dosage: 40 MG, UNK
  9. ATENOLOL [Concomitant]
     Dosage: 50 MG, UNK
  10. TYLENOL PM [Concomitant]
  11. TAXOTERE [Concomitant]
  12. CALCIUM WITH VITAMIN D [Concomitant]
  13. ANTIBIOTICS [Suspect]
  14. ARIMIDEX [Concomitant]
  15. VICODIN [Concomitant]
     Dosage: UNK, PRN
  16. ENALAPRIL MALEATE [Concomitant]
  17. DEXAMETHASONE [Concomitant]
     Dosage: 4 MG, TID
     Route: 048
     Dates: start: 20090109
  18. ASPIRIN [Concomitant]
     Dosage: 81 MG, UNK
  19. CENTRUM SILVER [Concomitant]
     Dosage: 1 TAB DAILY
  20. DICLOFENAC SODIUM [Concomitant]
     Dosage: 50 MG, BID
     Route: 048
  21. AMITRIPTYLINE HYDROCHLORIDE [Concomitant]
     Dosage: 25 MG, UNK
  22. ZYRTEC [Concomitant]
  23. ZOMETA [Suspect]
     Indication: BREAST CANCER
     Dosage: UNK
  24. LIPITOR [Concomitant]
     Dosage: 20 MG, UNK

REACTIONS (70)
  - OSTEOPOROSIS [None]
  - SPINAL FRACTURE [None]
  - GASTROOESOPHAGEAL REFLUX DISEASE [None]
  - HYPOKALAEMIA [None]
  - IRON DEFICIENCY ANAEMIA [None]
  - ENTHESOPATHY [None]
  - DIARRHOEA [None]
  - CHOLELITHIASIS [None]
  - CELLULITIS [None]
  - OESOPHAGEAL DISORDER [None]
  - URINARY TRACT INFECTION [None]
  - URINARY INCONTINENCE [None]
  - BONE DISORDER [None]
  - JAW DISORDER [None]
  - OSTEOARTHRITIS [None]
  - ARTHRALGIA [None]
  - WEIGHT DECREASED [None]
  - SEPSIS [None]
  - OVARIAN MASS [None]
  - DIPLOPIA [None]
  - ARRHYTHMIA [None]
  - PAIN [None]
  - ANXIETY [None]
  - HYPOPHAGIA [None]
  - COLITIS [None]
  - ANAEMIA [None]
  - DECREASED APPETITE [None]
  - ABSCESS [None]
  - DEHYDRATION [None]
  - PAIN IN EXTREMITY [None]
  - POSTMENOPAUSAL HAEMORRHAGE [None]
  - MENTAL STATUS CHANGES [None]
  - DYSURIA [None]
  - OSTEOMALACIA [None]
  - SWELLING FACE [None]
  - IMPAIRED HEALING [None]
  - TINEA PEDIS [None]
  - SYNOVITIS [None]
  - INFECTION [None]
  - DEFORMITY [None]
  - EMOTIONAL DISTRESS [None]
  - TOOTH FRACTURE [None]
  - ORAL PAIN [None]
  - LYMPH GLAND INFECTION [None]
  - PANCYTOPENIA [None]
  - SCIATICA [None]
  - COMPRESSION FRACTURE [None]
  - METASTASES TO MENINGES [None]
  - OSTEONECROSIS OF JAW [None]
  - OSTEOMYELITIS [None]
  - PYREXIA [None]
  - PERONEAL NERVE PALSY [None]
  - CATARACT [None]
  - KYPHOSIS [None]
  - DIZZINESS [None]
  - MUSCULAR WEAKNESS [None]
  - STAPHYLOCOCCAL INFECTION [None]
  - GINGIVAL DISORDER [None]
  - PARAESTHESIA ORAL [None]
  - SPINAL OSTEOARTHRITIS [None]
  - MASS [None]
  - BRONCHITIS [None]
  - JOINT EFFUSION [None]
  - HOT FLUSH [None]
  - DYSPNOEA EXERTIONAL [None]
  - GENERAL PHYSICAL HEALTH DETERIORATION [None]
  - EATING DISORDER [None]
  - BACK PAIN [None]
  - CONJUNCTIVITIS [None]
  - HEADACHE [None]
